FAERS Safety Report 8021208-2 (Version None)
Quarter: 2011Q4

REPORT INFORMATION
  Report Type: 
  Country: None (occurrence: None)
  Receive Date: 20111230
  Receipt Date: 20111230
  Transmission Date: 20120403
  Serious: Yes (Death, Hospitalization)
  Sender: FDA-Public Use
  Company Number: None

PATIENT
  Sex: Female
  Weight: 110.8 kg

DRUGS (2)
  1. TAXOTERE [Suspect]
     Dosage: 158 MG
     Dates: end: 20111208
  2. CYCLOPHOSPHAMIDE [Suspect]
     Dosage: 1266 MG
     Dates: end: 20111208

REACTIONS (28)
  - NAUSEA [None]
  - CHILLS [None]
  - HYPOTENSION [None]
  - PYELONEPHRITIS [None]
  - RENAL FAILURE ACUTE [None]
  - PNEUMONIA [None]
  - GASTROINTESTINAL MOTILITY DISORDER [None]
  - LARGE INTESTINE PERFORATION [None]
  - ATELECTASIS [None]
  - MENTAL STATUS CHANGES [None]
  - ASCITES [None]
  - CLOSTRIDIUM TEST POSITIVE [None]
  - GASTROINTESTINAL OBSTRUCTION [None]
  - HEPATIC STEATOSIS [None]
  - PLEURAL EFFUSION [None]
  - METASTASES TO LIVER [None]
  - SUPRAPUBIC PAIN [None]
  - PYREXIA [None]
  - NIGHT SWEATS [None]
  - DYSURIA [None]
  - RHABDOMYOLYSIS [None]
  - ISCHAEMIC HEPATITIS [None]
  - DIALYSIS [None]
  - ABDOMINAL PAIN [None]
  - MIDDLE INSOMNIA [None]
  - VOMITING [None]
  - INTESTINAL ISCHAEMIA [None]
  - ILEUS [None]
